FAERS Safety Report 20227917 (Version 1)
Quarter: 2021Q4

REPORT INFORMATION
  Report Type: Report from Study
  Country: US (occurrence: US)
  Receive Date: 20211224
  Receipt Date: 20211224
  Transmission Date: 20220303
  Serious: Yes (Hospitalization)
  Sender: FDA-Public Use
  Company Number: US-JNJFOC-20211245989

PATIENT
  Age: 60 Year
  Sex: Male
  Weight: 69.008 kg

DRUGS (35)
  1. HALDOL [Suspect]
     Active Substance: HALOPERIDOL
     Indication: General anaesthesia
     Route: 042
     Dates: start: 20200127, end: 20200127
  2. SUBLIMAZE [Suspect]
     Active Substance: FENTANYL CITRATE
     Indication: General anaesthesia
     Dosage: 25 UG AS NEEDED (EVERY 5 MINUTES)
     Route: 042
     Dates: start: 20200127, end: 20200127
  3. VERSED [Suspect]
     Active Substance: MIDAZOLAM HYDROCHLORIDE
     Indication: General anaesthesia
     Dosage: 2MG/2ML, TWICE
     Route: 042
     Dates: start: 20200127, end: 20200127
  4. DIPRIVAN [Suspect]
     Active Substance: PROPOFOL
     Indication: General anaesthesia
     Dosage: 200MG/20ML, ONCE
     Route: 042
     Dates: start: 20200127, end: 20200127
  5. FLEXERIL [Concomitant]
     Active Substance: CYCLOBENZAPRINE HYDROCHLORIDE
     Indication: Neck pain
     Dosage: ONGOING
     Dates: start: 20120215
  6. PROZAC [Concomitant]
     Active Substance: FLUOXETINE HYDROCHLORIDE
     Indication: Depression
     Dosage: ONGOING
     Dates: start: 20180521
  7. PROTONIX [Concomitant]
     Active Substance: PANTOPRAZOLE SODIUM
     Indication: Gastrooesophageal reflux disease
     Dosage: ONGOING
     Dates: start: 20150427
  8. DESYREL [Concomitant]
     Active Substance: TRAZODONE HYDROCHLORIDE
     Indication: Depression
     Dosage: ONGOING
     Dates: start: 20140827
  9. DIOVAN [Concomitant]
     Active Substance: VALSARTAN
     Indication: Hypertension
     Dosage: ONGOING
     Dates: start: 20190108
  10. COZAAR [Concomitant]
     Active Substance: LOSARTAN POTASSIUM
     Indication: Hypertension
     Dates: start: 20200127, end: 20200128
  11. ZOFRAN [Concomitant]
     Active Substance: ONDANSETRON HYDROCHLORIDE
     Dates: start: 20200127, end: 20200128
  12. MARCAINE [Concomitant]
     Active Substance: BUPIVACAINE HYDROCHLORIDE
     Dates: start: 20200127, end: 20200127
  13. SODIUM CHLORIDE [Concomitant]
     Active Substance: SODIUM CHLORIDE
     Dates: start: 20200127, end: 20200127
  14. ANCEF [Concomitant]
     Active Substance: CEFAZOLIN SODIUM
     Dates: start: 20200127, end: 20200127
  15. HEPARIN SODIUM, PORCINE [Concomitant]
     Active Substance: HEPARIN SODIUM
     Dates: start: 20200127, end: 20200127
  16. NEURONTIN [Concomitant]
     Active Substance: GABAPENTIN
     Dates: start: 20200127, end: 20200127
  17. MILK OF MAGNESIA [Concomitant]
     Active Substance: MAGNESIUM HYDROXIDE
     Dates: start: 20200127, end: 20200128
  18. DULCOLAX (BISACODYL) [Concomitant]
     Active Substance: BISACODYL
     Dates: start: 20200127, end: 20200128
  19. KETOROLAC TROMETHAMINE [Concomitant]
     Active Substance: KETOROLAC TROMETHAMINE
     Dates: start: 20200127, end: 20200128
  20. ULTRAM [Concomitant]
     Active Substance: TRAMADOL HYDROCHLORIDE
     Dates: start: 20200127, end: 20200128
  21. TYLENOL [Concomitant]
     Active Substance: ACETAMINOPHEN
     Dates: start: 20200127, end: 20200128
  22. NARCAN [Concomitant]
     Active Substance: NALOXONE HYDROCHLORIDE
     Dates: start: 20200127, end: 20200127
  23. REGLAN [Concomitant]
     Active Substance: METOCLOPRAMIDE HYDROCHLORIDE
     Dates: start: 20200127, end: 20200128
  24. DEMEROL [Concomitant]
     Active Substance: MEPERIDINE HYDROCHLORIDE
     Dates: start: 20200127, end: 20200127
  25. DILAUDID [Concomitant]
     Active Substance: HYDROMORPHONE HYDROCHLORIDE
     Dates: start: 20200127, end: 20200127
  26. XYLOCAINE [Concomitant]
     Active Substance: LIDOCAINE HYDROCHLORIDE
     Dates: start: 20200127, end: 20200127
  27. ZEMURON [Concomitant]
     Active Substance: ROCURONIUM BROMIDE
     Dates: start: 20200127, end: 20200127
  28. OPIUM + BELLADONNA [Concomitant]
     Dates: start: 20200127, end: 20200127
  29. PHENYLEPHRINE [Concomitant]
     Active Substance: PHENYLEPHRINE HYDROCHLORIDE
     Dates: start: 20200127, end: 20200127
  30. DECADRON [Concomitant]
     Active Substance: DEXAMETHASONE
     Dates: start: 20200127, end: 20200127
  31. ROBINUL [Concomitant]
     Active Substance: GLYCOPYRROLATE
     Dates: start: 20200127, end: 20200127
  32. NEOSTIGMINE [Concomitant]
     Active Substance: NEOSTIGMINE
     Dates: start: 20200127, end: 20200127
  33. EPHEDRINE [Concomitant]
     Active Substance: EPHEDRINE
     Dates: start: 20200127, end: 20200127
  34. LACTATED RINGERS SOLUTION [Concomitant]
     Active Substance: CALCIUM CHLORIDE\POTASSIUM CHLORIDE\SODIUM CHLORIDE\SODIUM LACTATE
     Dates: start: 20200127, end: 20200128
  35. NORVASC [Concomitant]
     Active Substance: AMLODIPINE BESYLATE
     Indication: Hypertension
     Dates: start: 20151013

REACTIONS (6)
  - Ileus [Recovered/Resolved]
  - Chest pain [Unknown]
  - Dyspnoea [Unknown]
  - Product use in unapproved indication [Unknown]
  - Incorrect route of product administration [Unknown]
  - Off label use [Unknown]

NARRATIVE: CASE EVENT DATE: 20200127
